FAERS Safety Report 18349871 (Version 1)
Quarter: 2020Q4

REPORT INFORMATION
  Report Type: Report from Study
  Country: FR (occurrence: FR)
  Receive Date: 20201006
  Receipt Date: 20201006
  Transmission Date: 20210114
  Serious: Yes (Other)
  Sender: FDA-Public Use
  Company Number: FR-CELGENEUS-FRA-20200908131

PATIENT
  Age: 89 Year
  Sex: Male

DRUGS (3)
  1. REVLIMID [Suspect]
     Active Substance: LENALIDOMIDE
     Indication: PLASMA CELL MYELOMA
     Dosage: 10 MILLIGRAM
     Route: 048
     Dates: start: 20150210, end: 20160812
  2. MLN9708 [Suspect]
     Active Substance: IXAZOMIB
     Indication: PLASMA CELL MYELOMA
     Route: 048
     Dates: start: 20150210, end: 20160428
  3. DEXAMETHASONE. [Suspect]
     Active Substance: DEXAMETHASONE
     Indication: PLASMA CELL MYELOMA
     Route: 048
     Dates: start: 20150210, end: 20150215

REACTIONS (1)
  - Malignant melanoma in situ [Recovered/Resolved]

NARRATIVE: CASE EVENT DATE: 20200820
